FAERS Safety Report 10187464 (Version 1)
Quarter: 2014Q2

REPORT INFORMATION
  Report Type: Spontaneous
  Country: US (occurrence: US)
  Receive Date: 20140522
  Receipt Date: 20140522
  Transmission Date: 20141212
  Serious: No
  Sender: FDA-Public Use
  Company Number: US-SANOFI-AVENTIS-2013SA079732

PATIENT
  Age: 79 Year
  Sex: Female
  Weight: 45 kg

DRUGS (3)
  1. LANTUS SOLOSTAR [Suspect]
     Indication: TYPE 2 DIABETES MELLITUS
     Dosage: PRODUCT STARTED ABOUT A YEAR AGO. DOSE:6 UNIT(S)
     Route: 051
  2. SOLOSTAR [Concomitant]
     Indication: TYPE 2 DIABETES MELLITUS
     Dosage: PRODUCT STARTED ABOUT A YEAR AGO.
  3. METFORMIN [Concomitant]
     Indication: DIABETES MELLITUS
     Dosage: TAKEN FROM: APPROX 10 YEARS AGO
     Route: 065

REACTIONS (1)
  - Visual acuity reduced [Unknown]
